FAERS Safety Report 4976428-8 (Version None)
Quarter: 2006Q2

REPORT INFORMATION
  Report Type: 
  Country: None (occurrence: None)
  Receive Date: 20060412
  Receipt Date: 20060403
  Transmission Date: 20061013
  Serious: Yes (Death)
  Sender: FDA-Public Use
  Company Number: 2006046439

PATIENT
  Sex: Male

DRUGS (3)
  1. GEODON [Suspect]
     Indication: SCHIZOPHRENIA
     Dosage: 160 MG (160 MG, 1 IN 1 D), ORAL
     Route: 048
  2. LAMICTAL [Concomitant]
  3. SEROQUEL [Concomitant]

REACTIONS (1)
  - DEATH [None]
